FAERS Safety Report 24174081 (Version 1)
Quarter: 2024Q3

REPORT INFORMATION
  Report Type: Spontaneous
  Country: US (occurrence: US)
  Receive Date: 20240805
  Receipt Date: 20240805
  Transmission Date: 20241017
  Serious: Yes (Other)
  Sender: PFIZER
  Company Number: US-PFIZER INC-202400228106

PATIENT
  Age: 46 Year
  Sex: Male

DRUGS (1)
  1. VELSIPITY [Suspect]
     Active Substance: ETRASIMOD ARGININE
     Dosage: TAKE 1 TABLET (2MG TOTAL) BY MOUTH DAILY
     Route: 048

REACTIONS (3)
  - Haemorrhage [Unknown]
  - Defaecation urgency [Unknown]
  - Malaise [Unknown]
